FAERS Safety Report 20218999 (Version 1)
Quarter: 2021Q4

REPORT INFORMATION
  Report Type: Spontaneous
  Country: US (occurrence: US)
  Receive Date: 20211222
  Receipt Date: 20211222
  Transmission Date: 20220303
  Serious: No
  Sender: FDA-Public Use
  Company Number: US-BIOHAVEN PHARMACEUTICALS-2021BHV01125

PATIENT
  Age: 71 Year
  Sex: Female
  Weight: 56.689 kg

DRUGS (14)
  1. NURTEC ODT [Suspect]
     Active Substance: RIMEGEPANT SULFATE
     Dosage: UNK, EVERY 48 HOURS?TREATMENT START STOP DATE:04-06-21/11-08-21/2 MONTHS 8 DAYS?TREATMENT START STOP
     Dates: start: 202006, end: 202006
  2. NURTEC ODT [Suspect]
     Active Substance: RIMEGEPANT SULFATE
     Dosage: UNK, EVERY 72 HOURS?TREATMENT START STOP DATE:6-2020/6-2020/?TREATMENT START STOP DATE:04-06-21/11-0
     Dates: start: 202006, end: 202006
  3. NURTEC ODT [Suspect]
     Active Substance: RIMEGEPANT SULFATE
     Dosage: UNK, AS NEEDED?TREATMENT START STOP DATE:6-2020/6-2020/?TREATMENT START STOP DATE:14-06-20/03-06-21/
     Dates: start: 20200614, end: 20210603
  4. NURTEC ODT [Suspect]
     Active Substance: RIMEGEPANT SULFATE
     Dosage: UNK, EVERY 48 HOURS?TREATMENT START STOP DATE:14-06-20/03-06-21/11 MONTHS 21 DAYS?TREATMENT START ST
     Dates: start: 20210604, end: 20210811
  5. EMGALITY [Concomitant]
     Active Substance: GALCANEZUMAB-GNLM
     Dosage: UNK?TREATMENT START STOP DATE:6-2020/6-2020/?TREATMENT START STOP DATE:04-06-21/11-08-21/2 MONTHS 8
     Dates: start: 20210602
  6. EMGALITY [Concomitant]
     Active Substance: GALCANEZUMAB-GNLM
     Dosage: 120 MG, 1X/MONTH?TREATMENT START STOP DATE:14-06-20/03-06-21/11 MONTHS 21 DAYS?TREATMENT START STOP
     Dates: start: 2021
  7. RELPAX [Concomitant]
     Active Substance: ELETRIPTAN HYDROBROMIDE
     Dosage: 40 MG?TREATMENT START STOP DATE:6-2020/6-2020/?TREATMENT START STOP DATE:04-06-21/11-08-21/2 MONTHS
  8. ^TOLOM^ [Concomitant]
     Dosage: 1 DROP, 1X/DAY AT BEDTIME INTO BOTH EYES?TREATMENT START STOP DATE:04-06-21/11-08-21/2 MONTHS 8 DAYS
  9. ESTROGENS [Concomitant]
     Active Substance: ESTROGENS
     Dosage: TREATMENT START STOP DATE:04-06-21/11-08-21/2 MONTHS 8 DAYS?TREATMENT START STOP DATE:14-06-20/03-0
     Route: 067
  10. BOTOX [Concomitant]
     Active Substance: ONABOTULINUMTOXINA
     Dosage: 155 IU?TREATMENT START STOP DATE:14-06-20/03-06-21/11 MONTHS 21 DAYS?TREATMENT START STOP DATE:6-202
     Dates: start: 20170810
  11. BLACK COHOSH [Concomitant]
     Active Substance: BLACK COHOSH
  12. AIMOVIG [Concomitant]
     Active Substance: ERENUMAB-AOOE
     Dosage: 70 MG?TREATMENT START STOP DATE:04-06-21/11-08-21/2 MONTHS 8 DAYS?TREATMENT START STOP DATE:6-2020/6
     Dates: start: 20190514
  13. AIMOVIG [Concomitant]
     Active Substance: ERENUMAB-AOOE
     Dosage: 140 MG, 1X/MONTH?TREATMENT START STOP DATE:14-06-20/03-06-21/11 MONTHS 21 DAYS?TREATMENT START STOP
     Dates: start: 20190613, end: 20210420
  14. EXCEDRIN [Concomitant]
     Active Substance: ACETAMINOPHEN\ASPIRIN\CAFFEINE

REACTIONS (2)
  - Photosensitivity reaction [Recovered/Resolved]
  - Therapeutic product effect incomplete [Recovered/Resolved]

NARRATIVE: CASE EVENT DATE: 20210601
